FAERS Safety Report 13176952 (Version 1)
Quarter: 2017Q1

REPORT INFORMATION
  Report Type: Report from Study
  Country: US (occurrence: US)
  Receive Date: 20170201
  Receipt Date: 20170201
  Transmission Date: 20170428
  Serious: No
  Sender: FDA-Public Use
  Company Number: US-EXELIXIS-CABO-16006711

PATIENT
  Age: 67 Year
  Sex: Male
  Weight: 178.96 kg

DRUGS (17)
  1. CABOMETYX [Suspect]
     Active Substance: CABOZANTINIB S-MALATE
     Indication: COLON CANCER
  2. FENTANYL. [Concomitant]
     Active Substance: FENTANYL
  3. FLOMAX [Concomitant]
     Active Substance: TAMSULOSIN HYDROCHLORIDE
  4. SENNA [Concomitant]
     Active Substance: SENNA LEAF\SENNOSIDES\SENNOSIDES A AND B
  5. HUMALOG [Concomitant]
     Active Substance: INSULIN LISPRO
  6. VITAMIN B12 [Concomitant]
     Active Substance: CYANOCOBALAMIN
  7. VITAMIN D3 [Concomitant]
     Active Substance: CHOLECALCIFEROL
  8. PREVAGEN [Concomitant]
     Active Substance: DIETARY SUPPLEMENT
  9. LANTUS [Concomitant]
     Active Substance: INSULIN GLARGINE
  10. ZOFRAN [Concomitant]
     Active Substance: ONDANSETRON HYDROCHLORIDE
  11. VOTRIENT [Concomitant]
     Active Substance: PAZOPANIB HYDROCHLORIDE
  12. NEXIUM [Concomitant]
     Active Substance: ESOMEPRAZOLE MAGNESIUM
  13. FIBER LAXATIVE [Concomitant]
     Active Substance: CALCIUM POLYCARBOPHIL
  14. CABOMETYX [Suspect]
     Active Substance: CABOZANTINIB S-MALATE
     Indication: RENAL CELL CARCINOMA
     Dosage: 60 MG, QD
     Route: 048
     Dates: start: 20160629
  15. LISINOPRIL. [Concomitant]
     Active Substance: LISINOPRIL
  16. NORCO [Concomitant]
     Active Substance: ACETAMINOPHEN\HYDROCODONE BITARTRATE
  17. METOPROLOL. [Concomitant]
     Active Substance: METOPROLOL

REACTIONS (6)
  - Glossitis [Unknown]
  - Stomatitis [Unknown]
  - Glossodynia [Unknown]
  - Oesophageal pain [Unknown]
  - Dyspepsia [Unknown]
  - Dysgeusia [Unknown]

NARRATIVE: CASE EVENT DATE: 201607
